FAERS Safety Report 4935930-5 (Version None)
Quarter: 2006Q1

REPORT INFORMATION
  Report Type: 
  Country: None (occurrence: None)
  Receive Date: 20060307
  Receipt Date: 20050715
  Transmission Date: 20060701
  Serious: No
  Sender: FDA-Public Use
  Company Number: US-GLAXOSMITHKLINE-A0566451A

PATIENT
  Age: 75 Year
  Sex: Male

DRUGS (3)
  1. REQUIP [Suspect]
     Indication: DRUG USE FOR UNKNOWN INDICATION
     Dosage: 5MG PER DAY
     Route: 048
     Dates: start: 20050509
  2. UNKNOWN MEDICATION [Concomitant]
  3. CADUET [Concomitant]

REACTIONS (1)
  - DRUG INEFFECTIVE [None]
